FAERS Safety Report 12765239 (Version 1)
Quarter: 2016Q3

REPORT INFORMATION
  Report Type: Spontaneous
  Country: GB (occurrence: GB)
  Receive Date: 20160921
  Receipt Date: 20160921
  Transmission Date: 20161109
  Serious: Yes (Other)
  Sender: FDA-Public Use
  Company Number: GB-AUROBINDO-AUR-APL-2016-11433

PATIENT
  Sex: Male

DRUGS (3)
  1. AMLODIPINE [Suspect]
     Active Substance: AMLODIPINE BESYLATE
     Indication: PRODUCT USED FOR UNKNOWN INDICATION
     Dosage: 5MG
     Route: 065
     Dates: start: 201601
  2. AMLODIPINE [Suspect]
     Active Substance: AMLODIPINE BESYLATE
     Dosage: REDUCED DOWN TO 5MG
     Route: 065
     Dates: end: 201603
  3. AMLODIPINE [Suspect]
     Active Substance: AMLODIPINE BESYLATE
     Dosage: THEN INCREASED TO 10MG
     Route: 065

REACTIONS (23)
  - Oedema peripheral [Not Recovered/Not Resolved]
  - Scab [Not Recovered/Not Resolved]
  - Back pain [Unknown]
  - Secretion discharge [Not Recovered/Not Resolved]
  - Rhinorrhoea [Not Recovered/Not Resolved]
  - Urticaria [Unknown]
  - Erythema [Not Recovered/Not Resolved]
  - Erectile dysfunction [Unknown]
  - Sinus pain [Not Recovered/Not Resolved]
  - Sputum discoloured [Unknown]
  - Paraesthesia [Not Recovered/Not Resolved]
  - Pain [Not Recovered/Not Resolved]
  - Oropharyngeal pain [Not Recovered/Not Resolved]
  - Productive cough [Not Recovered/Not Resolved]
  - Nasal congestion [Not Recovered/Not Resolved]
  - Gingival pain [Unknown]
  - Gingival bleeding [Unknown]
  - Pruritus [Unknown]
  - Constipation [Unknown]
  - Nasopharyngitis [Not Recovered/Not Resolved]
  - Somnolence [Unknown]
  - Skin ulcer [Recovering/Resolving]
  - Treatment noncompliance [Not Recovered/Not Resolved]

NARRATIVE: CASE EVENT DATE: 201601
